FAERS Safety Report 19555873 (Version 2)
Quarter: 2021Q3

REPORT INFORMATION
  Report Type: Spontaneous
  Country: IT (occurrence: IT)
  Receive Date: 20210714
  Receipt Date: 20210730
  Transmission Date: 20211014
  Serious: Yes (Life-Threatening, Hospitalization, Other)
  Sender: FDA-Public Use
  Company Number: IT-SA-2021SA230473

PATIENT
  Age: 80 Year
  Sex: Male

DRUGS (6)
  1. LEUCOVORIN [FOLINIC ACID] [Concomitant]
     Active Substance: LEUCOVORIN
     Indication: METASTASES TO LIVER
     Dosage: EVERY TWO?WEEKS
     Route: 040
  2. FLUOROURACIL. [Interacting]
     Active Substance: FLUOROURACIL
     Indication: COLORECTAL CANCER STAGE IV
     Dosage: 46 H OF CONTINUOUS INFUSION , EVERY TWO?WEEKS
     Route: 040
  3. FLUOROURACIL. [Interacting]
     Active Substance: FLUOROURACIL
     Indication: METASTASES TO LIVER
     Dosage: IN?HOSPITAL BOLUS, EVERY TWO?WEEKS
     Route: 040
  4. OXALIPLATIN. [Suspect]
     Active Substance: OXALIPLATIN
     Indication: COLORECTAL CANCER STAGE IV
     Dosage: EVERY TWO WEEKS
     Route: 040
  5. OXALIPLATIN. [Interacting]
     Active Substance: OXALIPLATIN
     Indication: METASTASES TO LIVER
     Dosage: 46 H OF CONTINUOUS INFUSION , EVERY TWO?WEEKS
     Route: 040
  6. LEUCOVORIN [FOLINIC ACID] [Concomitant]
     Active Substance: LEUCOVORIN
     Indication: COLORECTAL CANCER STAGE IV
     Dosage: 46 H OF CONTINUOUS INFUSION , EVERY TWO?WEEKS
     Route: 040

REACTIONS (13)
  - Chest pain [Recovered/Resolved]
  - Arteriospasm coronary [Recovered/Resolved]
  - Bundle branch block left [Recovered/Resolved]
  - Cardiotoxicity [Recovered/Resolved]
  - Acute coronary syndrome [Recovered/Resolved]
  - Angina pectoris [Recovered/Resolved]
  - Left ventricular dysfunction [Recovered/Resolved]
  - Coronary artery stenosis [Recovered/Resolved]
  - Myocardial ischaemia [Recovered/Resolved]
  - Agitation [Recovered/Resolved]
  - Electrocardiogram ST segment elevation [Recovered/Resolved]
  - Potentiating drug interaction [Recovered/Resolved]
  - Ventricular hypokinesia [Recovered/Resolved]
